FAERS Safety Report 20463093 (Version 3)
Quarter: 2022Q4

REPORT INFORMATION
  Report Type: Report from Study
  Country: BR (occurrence: BR)
  Receive Date: 20220211
  Receipt Date: 20221025
  Transmission Date: 20230113
  Serious: Yes (Hospitalization)
  Sender: FDA-Public Use
  Company Number: BR-BIOGEN-2022BI01094294

PATIENT
  Age: 0 Year
  Sex: Female
  Weight: 13.3 kg

DRUGS (5)
  1. SPINRAZA [Suspect]
     Active Substance: NUSINERSEN
     Indication: Spinal muscular atrophy
     Route: 050
     Dates: start: 20211029, end: 20220214
  2. SPINRAZA [Suspect]
     Active Substance: NUSINERSEN
     Route: 050
     Dates: start: 20220222
  3. PURAVIT VITAMIN-MINERAL SUPPLEMENT [Concomitant]
     Indication: Vitamin supplementation
     Route: 050
     Dates: start: 202107
  4. ULTRAFER (FERRIPOLYMALTOSE) [Concomitant]
     Indication: Vitamin supplementation
     Route: 050
     Dates: start: 202107
  5. RISDIPLAM [Concomitant]
     Active Substance: RISDIPLAM
     Indication: Spinal muscular atrophy
     Dosage: 0.2 PER KG DAILY
     Route: 050
     Dates: start: 20220412

REACTIONS (8)
  - Pneumonia aspiration [Recovered/Resolved]
  - Cardio-respiratory arrest [Recovered/Resolved with Sequelae]
  - Seizure [Recovered/Resolved]
  - Meningorrhagia [Recovered/Resolved]
  - Increased bronchial secretion [Recovered/Resolved]
  - Dysphagia [Recovered/Resolved]
  - Poor feeding infant [Unknown]
  - Complication associated with device [Recovered/Resolved]

NARRATIVE: CASE EVENT DATE: 20211103
